FAERS Safety Report 4755412-3 (Version None)
Quarter: 2005Q3

REPORT INFORMATION
  Report Type: 
  Country: None (occurrence: None)
  Receive Date: 20050826
  Receipt Date: 20050826
  Transmission Date: 20060218
  Serious: Yes (Other)
  Sender: FDA-Public Use
  Company Number: None

PATIENT
  Age: 27 Year
  Sex: Female
  Weight: 86.1834 kg

DRUGS (2)
  1. MERIDIA [Suspect]
     Indication: OBESITY
     Dosage: 15 MG DAILY INJ
  2. XANAX XR [Suspect]
     Indication: GENERALISED ANXIETY DISORDER
     Dosage: 5 MG DAILY INJ

REACTIONS (1)
  - CONVULSION [None]
